FAERS Safety Report 5478394-8 (Version None)
Quarter: 2007Q4

REPORT INFORMATION
  Report Type: 
  Country: None (occurrence: None)
  Receive Date: 20071005
  Receipt Date: 20070927
  Transmission Date: 20080405
  Serious: Yes (Life-Threatening)
  Sender: FDA-Public Use
  Company Number: B0489780A

PATIENT
  Age: 7 Year
  Sex: Female

DRUGS (4)
  1. ONDANSETRON [Suspect]
     Dosage: 2.2MG UNKNOWN
     Route: 042
     Dates: start: 20070831, end: 20070831
  2. FENTANYL [Concomitant]
     Route: 042
     Dates: start: 20070830, end: 20070830
  3. PROPOFOL [Concomitant]
     Route: 042
     Dates: start: 20070830, end: 20070830
  4. SUXAMETHONIUM [Concomitant]
     Route: 042
     Dates: start: 20070830, end: 20070830

REACTIONS (3)
  - HEART RATE INCREASED [None]
  - MOBILITY DECREASED [None]
  - RESPIRATORY RATE DECREASED [None]
